FAERS Safety Report 7022644-3 (Version None)
Quarter: 2010Q3

REPORT INFORMATION
  Report Type: 
  Country: None (occurrence: None)
  Receive Date: 20100930
  Receipt Date: 20100923
  Transmission Date: 20110219
  Serious: Yes (Other)
  Sender: FDA-Public Use
  Company Number: BR-PFIZER INC-2010115227

PATIENT
  Age: 62 Year
  Sex: Female
  Weight: 57 kg

DRUGS (4)
  1. CHAMPIX [Suspect]
     Indication: SMOKING CESSATION THERAPY
     Dosage: UNK
     Route: 048
     Dates: start: 20100911
  2. CHAMPIX [Suspect]
     Indication: TOBACCO USER
  3. CALCIUM [Concomitant]
     Indication: OSTEOPOROSIS
     Dosage: UNK (4 OR 5 YEARS)
     Dates: start: 19900101
  4. ALENDRONATE SODIUM [Concomitant]
     Indication: OSTEOPOROSIS
     Dosage: UNK (4 OR 5 YEARS)
     Dates: start: 19900101

REACTIONS (3)
  - AGITATION [None]
  - ANXIETY [None]
  - NERVOUSNESS [None]
